FAERS Safety Report 26173418 (Version 1)
Quarter: 2025Q4

REPORT INFORMATION
  Report Type: Spontaneous
  Country: US (occurrence: US)
  Receive Date: 20251218
  Receipt Date: 20251218
  Transmission Date: 20260117
  Serious: Yes (Disabling, Other)
  Sender: GC Biopharma
  Company Number: US-GC BIOPHARMA-US-2025-GCBP-00034

PATIENT
  Age: 54 Year
  Sex: Female
  Weight: 88.45 kg

DRUGS (5)
  1. ALYGLO [Suspect]
     Active Substance: HUMAN IMMUNOGLOBULIN G-STWK
     Indication: Immunodeficiency common variable
     Dosage: 4 VIALS OF 10 GRAM, 4W
     Route: 042
     Dates: start: 20251015, end: 20251015
  2. ALYGLO [Suspect]
     Active Substance: HUMAN IMMUNOGLOBULIN G-STWK
     Indication: Multiple sclerosis
     Dosage: UNK, UNK
     Route: 042
     Dates: start: 20250723, end: 20250723
  3. BENADRYL [Concomitant]
     Active Substance: DIPHENHYDRAMINE HYDROCHLORIDE
     Indication: Premedication
     Dosage: 25 MILLIGRAM, UNK
     Route: 042
     Dates: start: 20251015
  4. TYLENOL [Concomitant]
     Active Substance: ACETAMINOPHEN
     Indication: Premedication
     Dosage: 650 MILLIGRAM, UNK
     Route: 048
     Dates: start: 20251015
  5. SODIUM CHLORIDE [Concomitant]
     Active Substance: SODIUM CHLORIDE
     Indication: Premedication
     Dosage: 500 MILLILITER, UNK
     Route: 042
     Dates: start: 20251015

REACTIONS (3)
  - Rash [Recovered/Resolved]
  - Pruritus [Recovered/Resolved]
  - Off label use [Unknown]

NARRATIVE: CASE EVENT DATE: 20250723
